FAERS Safety Report 7334911-4 (Version None)
Quarter: 2011Q1

REPORT INFORMATION
  Report Type: 
  Country: None (occurrence: None)
  Receive Date: 20110307
  Receipt Date: 20110302
  Transmission Date: 20110831
  Serious: Yes (Life-Threatening, Hospitalization, Other)
  Sender: FDA-Public Use
  Company Number: JP-ROCHE-738424

PATIENT
  Sex: Female
  Weight: 53 kg

DRUGS (12)
  1. ASTOMIN [Concomitant]
     Route: 048
     Dates: start: 20091216, end: 20091231
  2. AVASTIN [Suspect]
     Indication: RECTAL CANCER RECURRENT
     Route: 041
     Dates: start: 20091125
  3. MUCODYNE [Concomitant]
     Route: 048
     Dates: start: 20091216, end: 20091231
  4. GLAKAY [Concomitant]
     Route: 048
     Dates: start: 20100226
  5. ELPLAT [Concomitant]
     Dosage: DOSAGE IS UNCERTAIN.
     Route: 041
     Dates: start: 20090601, end: 20100301
  6. DECADRON [Concomitant]
     Route: 048
  7. OMEPRA [Concomitant]
     Route: 048
     Dates: start: 20091125
  8. INDISETRON HYDROCHLORIDE [Concomitant]
     Route: 048
     Dates: start: 20091125
  9. CELECOXIB [Suspect]
     Route: 048
     Dates: start: 20100226
  10. 5-FU [Concomitant]
     Dosage: DOSAGE IS UNCERTAIN.
     Route: 040
     Dates: start: 20090601, end: 20100301
  11. 5-FU [Concomitant]
     Dosage: DOSAGE IS UNCERTAIN.
     Route: 041
     Dates: start: 20090601, end: 20100301
  12. LEVOFOLINATE [Concomitant]
     Dosage: DOSAGE IS UNCERTAIN.
     Route: 041
     Dates: start: 20090601, end: 20100301

REACTIONS (5)
  - DUODENAL PERFORATION [None]
  - PNEUMORETROPERITONEUM [None]
  - DIVERTICULITIS [None]
  - GASTRODUODENAL ULCER [None]
  - DISSEMINATED INTRAVASCULAR COAGULATION [None]
